FAERS Safety Report 14960056 (Version 2)
Quarter: 2018Q2

REPORT INFORMATION
  Report Type: Spontaneous
  Country: JP (occurrence: JP)
  Receive Date: 20180531
  Receipt Date: 20180614
  Transmission Date: 20180711
  Serious: Yes (Other)
  Sender: FDA-Public Use
  Company Number: JP-AMGEN-JPNSP2018073439

PATIENT
  Age: 73 Year
  Sex: Female

DRUGS (1)
  1. RANMARK [Suspect]
     Active Substance: DENOSUMAB
     Indication: BONE GIANT CELL TUMOUR
     Dosage: UNK
     Route: 058

REACTIONS (2)
  - Osteosarcoma [Unknown]
  - Spinal cord disorder [Recovered/Resolved]

NARRATIVE: CASE EVENT DATE: 201705
